FAERS Safety Report 5721961-4 (Version None)
Quarter: 2008Q2

REPORT INFORMATION
  Report Type: 
  Country: None (occurrence: None)
  Receive Date: 20080429
  Receipt Date: 20080425
  Transmission Date: 20081010
  Serious: Yes (Other)
  Sender: FDA-Public Use
  Company Number: NL-BOEHRINGER INGELHEIM GMBH, GERMANY-2008-DE-02504GD

PATIENT

DRUGS (3)
  1. MORPHINE [Suspect]
     Indication: PAIN
     Dosage: SINGLE BOLUS INJECTION OF 5 MG, FOLLOWED BY 0.03 MG/KG/H, INCREASE WITH CUMULATIVE STEPS OF 1 MG/H I
     Route: 042
  2. ACETAMINOPHEN [Concomitant]
     Indication: PAIN
     Route: 048
  3. DICLOFENAC SODIUM [Concomitant]
     Indication: PAIN
     Route: 048

REACTIONS (2)
  - HYPOVENTILATION [None]
  - HYPOXIA [None]
